FAERS Safety Report 4305687-X (Version None)
Quarter: 2004Q1

REPORT INFORMATION
  Report Type: 
  Country: None (occurrence: None)
  Receive Date: 20040225
  Receipt Date: 20040213
  Transmission Date: 20041129
  Serious: Yes (Disabling, Other)
  Sender: FDA-Public Use
  Company Number: NSADSS2003016725

PATIENT
  Age: 57 Year
  Sex: Female
  Weight: 63.5036 kg

DRUGS (7)
  1. REMICADE [Suspect]
     Indication: RHEUMATOID ARTHRITIS
     Dosage: 4 MG/KG, 1 IN 2 MONTH, INTRAVENOUS DRIP
     Route: 041
  2. METHOTREXATE [Concomitant]
  3. FOLIC ACID [Concomitant]
  4. ZOLOFT [Concomitant]
  5. VIOXX [Concomitant]
  6. DICYCLOMINE [Concomitant]
  7. MEDROL [Concomitant]

REACTIONS (18)
  - ARTHRALGIA [None]
  - BACK INJURY [None]
  - BRAIN NEOPLASM [None]
  - CONDITION AGGRAVATED [None]
  - CONFUSIONAL STATE [None]
  - DEMYELINATION [None]
  - DIFFICULTY IN WALKING [None]
  - FALL [None]
  - HEAD INJURY [None]
  - HYPOACUSIS [None]
  - HYPOAESTHESIA [None]
  - MEDICATION ERROR [None]
  - NOCTURNAL DYSPNOEA [None]
  - NUCLEAR MAGNETIC RESONANCE IMAGING BRAIN ABNORMAL [None]
  - PARAESTHESIA [None]
  - RHEUMATOID ARTHRITIS [None]
  - TREATMENT NONCOMPLIANCE [None]
  - VERTIGO [None]
